FAERS Safety Report 18948585 (Version 1)
Quarter: 2021Q1

REPORT INFORMATION
  Report Type: Spontaneous
  Country: US (occurrence: US)
  Receive Date: 20210226
  Receipt Date: 20210226
  Transmission Date: 20210420
  Serious: Yes (Other)
  Sender: FDA-Public Use
  Company Number: US-ROCHE-2568210

PATIENT
  Sex: Female
  Weight: 72.64 kg

DRUGS (6)
  1. XOLAIR [Suspect]
     Active Substance: OMALIZUMAB
     Indication: CHRONIC SPONTANEOUS URTICARIA
     Dosage: ONGOING:YES
     Route: 065
     Dates: start: 20190501
  2. GABAPENTIN. [Concomitant]
     Active Substance: GABAPENTIN
  3. ZYRTEC [Concomitant]
     Active Substance: CETIRIZINE HYDROCHLORIDE
  4. ALLEGRA ALLERGY [Concomitant]
     Active Substance: FEXOFENADINE HYDROCHLORIDE
  5. BUSPIRONE [Concomitant]
     Active Substance: BUSPIRONE HYDROCHLORIDE
  6. ZADITOR [Concomitant]
     Active Substance: KETOTIFEN FUMARATE

REACTIONS (2)
  - Pruritus [Not Recovered/Not Resolved]
  - Plasma cell myeloma [Not Recovered/Not Resolved]
